FAERS Safety Report 19139946 (Version 2)
Quarter: 2023Q4

REPORT INFORMATION
  Report Type: Spontaneous
  Country: ES (occurrence: ES)
  Receive Date: 20210415
  Receipt Date: 20231120
  Transmission Date: 20240109
  Serious: Yes (Death, Other)
  Sender: FDA-Public Use
  Company Number: None

PATIENT
  Age: 59 Year
  Sex: Female

DRUGS (2)
  1. ACETAMINOPHEN [Suspect]
     Active Substance: ACETAMINOPHEN
     Indication: Pyrexia
     Dosage: 1 GRAM,QID,(IN EVERY 0.25 DAY,1000 MG C/6H)
     Route: 048
     Dates: start: 20200724, end: 20200727
  2. METFORMIN [Concomitant]
     Active Substance: METFORMIN HYDROCHLORIDE
     Dosage: 850 MILLIGRAM,BID,(850 MG C/12H)
     Route: 048
     Dates: start: 20191231

REACTIONS (1)
  - Hepatitis toxic [Fatal]

NARRATIVE: CASE EVENT DATE: 20200727
